FAERS Safety Report 7960802-1 (Version None)
Quarter: 2011Q4

REPORT INFORMATION
  Report Type: 
  Country: None (occurrence: None)
  Receive Date: 20111207
  Receipt Date: 20111123
  Transmission Date: 20120403
  Serious: No
  Sender: FDA-Public Use
  Company Number: US-BIOGENIDEC-2011BI045244

PATIENT
  Sex: Male

DRUGS (2)
  1. TYSABRI [Suspect]
     Indication: PRODUCT USED FOR UNKNOWN INDICATION
     Route: 042
  2. CHEMO MED (NOS) [Concomitant]
     Indication: DRUG INEFFECTIVE

REACTIONS (2)
  - DRUG INEFFECTIVE [None]
  - ABASIA [None]
